FAERS Safety Report 16795777 (Version 1)
Quarter: 2019Q3

REPORT INFORMATION
  Report Type: Spontaneous
  Country: FR (occurrence: FR)
  Receive Date: 20190911
  Receipt Date: 20190911
  Transmission Date: 20191005
  Serious: Yes (Hospitalization)
  Sender: FDA-Public Use
  Company Number: PHHY2018FR085409

PATIENT
  Age: 46 Year
  Sex: Male

DRUGS (5)
  1. FLUOXETINE [Suspect]
     Active Substance: FLUOXETINE HYDROCHLORIDE
     Indication: DEPRESSION
     Dosage: 200 MG, QD (LE MATIN)
     Route: 048
     Dates: start: 2008, end: 201807
  2. PANTOPRAZOLE [Concomitant]
     Active Substance: PANTOPRAZOLE
     Indication: PRODUCT USED FOR UNKNOWN INDICATION
     Dosage: 40 MG, QD
     Route: 048
     Dates: start: 2008
  3. BUPRENORPHINE. [Concomitant]
     Active Substance: BUPRENORPHINE
     Indication: DRUG DEPENDENCE
     Dosage: 4 MG, QD (LE SOIR)
     Route: 048
  4. LYSANXIA [Suspect]
     Active Substance: PRAZEPAM
     Indication: ANXIETY
     Dosage: 30 MG, QD (MATIN, MIDI ET SOIR)
     Route: 048
     Dates: start: 2008, end: 201807
  5. METHOTREXATE. [Concomitant]
     Active Substance: METHOTREXATE
     Indication: CUTANEOUS T-CELL LYMPHOMA
     Dosage: UNK
     Route: 048

REACTIONS (2)
  - Photosensitivity reaction [Recovering/Resolving]
  - Chronic actinic dermatitis [Recovering/Resolving]

NARRATIVE: CASE EVENT DATE: 2017
